FAERS Safety Report 4543027-1 (Version None)
Quarter: 2004Q4

REPORT INFORMATION
  Report Type: 
  Country: None (occurrence: None)
  Receive Date: 20041223
  Receipt Date: 20041210
  Transmission Date: 20050328
  Serious: No
  Sender: FDA-Public Use
  Company Number: HQWYE971215DEC04

PATIENT
  Sex: 0

DRUGS (1)
  1. BENEFIX [Suspect]
     Indication: FACTOR IX DEFICIENCY

REACTIONS (2)
  - COAGULATION FACTOR IX LEVEL DECREASED [None]
  - DRUG EFFECT DECREASED [None]
